FAERS Safety Report 4929802-X (Version None)
Quarter: 2006Q1

REPORT INFORMATION
  Report Type: 
  Country: None (occurrence: None)
  Receive Date: 20060301
  Receipt Date: 20051019
  Transmission Date: 20060701
  Serious: Yes (Life-Threatening, Hospitalization, Other)
  Sender: FDA-Public Use
  Company Number: US-MERCK-0510USA08098

PATIENT
  Age: 73 Year
  Sex: Female
  Weight: 75 kg

DRUGS (5)
  1. VIOXX [Suspect]
     Indication: OSTEOARTHRITIS
     Route: 048
     Dates: start: 20020101, end: 20040101
  2. SYNTHROID [Concomitant]
     Indication: THYROID DISORDER
     Route: 065
  3. PREMARIN [Concomitant]
     Route: 065
  4. PREVACID [Concomitant]
     Indication: DYSPEPSIA
     Route: 065
  5. PROZAC [Concomitant]
     Indication: DEPRESSION
     Route: 065

REACTIONS (18)
  - ARTHRALGIA [None]
  - BLADDER DISORDER [None]
  - BLOOD CHOLESTEROL INCREASED [None]
  - BLOOD PRESSURE INCREASED [None]
  - BRONCHITIS [None]
  - CHEST PAIN [None]
  - DEPRESSION [None]
  - DYSPEPSIA [None]
  - FALL [None]
  - MUSCULOSKELETAL DISORDER [None]
  - PAIN [None]
  - PAIN IN EXTREMITY [None]
  - PULMONARY EMBOLISM [None]
  - SLEEP DISORDER [None]
  - SUICIDE ATTEMPT [None]
  - THROAT CANCER [None]
  - THROMBOSIS [None]
  - THYROID DISORDER [None]
